FAERS Safety Report 10022421 (Version 1)
Quarter: 2014Q1

REPORT INFORMATION
  Report Type: Spontaneous
  Country: CL (occurrence: CL)
  Receive Date: 20140319
  Receipt Date: 20140319
  Transmission Date: 20141002
  Serious: Yes (Other)
  Sender: FDA-Public Use
  Company Number: CL-PFIZER INC-2014076357

PATIENT
  Age: 77 Year
  Sex: Female

DRUGS (3)
  1. XALATAN [Suspect]
     Indication: GLAUCOMA
     Dosage: 1 DROP, 1X/DAY
     Route: 047
     Dates: start: 2004
  2. LEXAPRO [Concomitant]
     Dosage: UNK
     Dates: start: 2009
  3. AERIUS [Concomitant]
     Dosage: UNK
     Dates: start: 2011

REACTIONS (1)
  - Cataract [Unknown]
